FAERS Safety Report 21918829 (Version 1)
Quarter: 2023Q1

REPORT INFORMATION
  Report Type: Spontaneous
  Country: CN (occurrence: CN)
  Receive Date: 20230127
  Receipt Date: 20230127
  Transmission Date: 20230417
  Serious: Yes (Other)
  Sender: FDA-Public Use
  Company Number: CN-BEH-2023154512

PATIENT
  Age: 69 Year
  Sex: Female
  Weight: 42 kg

DRUGS (1)
  1. ALBURX [Suspect]
     Active Substance: ALBUMIN HUMAN
     Indication: Hypoproteinaemia
     Dosage: 10 GRAM, OD
     Route: 041
     Dates: start: 20230115, end: 20230115

REACTIONS (7)
  - Tachycardia [Recovering/Resolving]
  - Chills [Recovering/Resolving]
  - Chest discomfort [Recovering/Resolving]
  - Pyrexia [Recovering/Resolving]
  - Hypertension [Recovering/Resolving]
  - Oxygen saturation decreased [Recovered/Resolved]
  - Rhonchi [Recovering/Resolving]

NARRATIVE: CASE EVENT DATE: 20230115
